FAERS Safety Report 7278930-5 (Version None)
Quarter: 2011Q1

REPORT INFORMATION
  Report Type: 
  Country: None (occurrence: None)
  Receive Date: 20110207
  Receipt Date: 20110125
  Transmission Date: 20110831
  Serious: Yes (Hospitalization)
  Sender: FDA-Public Use
  Company Number: PHHY2011CA05452

PATIENT
  Sex: Female

DRUGS (13)
  1. PREDNISONE [Concomitant]
     Dosage: UNK
  2. ACLASTA [Suspect]
     Indication: OSTEOPENIA
     Dosage: 5 MG ONCE YEARLY
     Route: 042
     Dates: start: 20110105
  3. PANTOPRAZOLE [Concomitant]
     Dosage: UNK
     Dates: start: 20110105
  4. ESTER-C [Concomitant]
     Dosage: UNK
     Dates: start: 20110103
  5. ESCITALOPRAM [Concomitant]
     Dosage: UNK
     Dates: start: 20110105
  6. VITAMIN B-12 [Suspect]
  7. AZATHIOPRINE [Concomitant]
     Dosage: UNK
     Dates: start: 20110105
  8. HYDROMORPHONE HCL [Concomitant]
     Dosage: UNK
     Dates: start: 20110105
  9. VITAMIN D [Concomitant]
     Dosage: UNK
     Dates: start: 20110105
  10. ADVAIR [Concomitant]
     Dosage: UNK
     Dates: start: 20110105
  11. CALCIUM CARBONATE [Concomitant]
     Dosage: UNK
     Dates: start: 20110105
  12. IBUPROFEN [Concomitant]
     Dosage: UNK
     Dates: start: 20110105
  13. DOCUSATE [Concomitant]

REACTIONS (16)
  - NECK PAIN [None]
  - PYREXIA [None]
  - HEADACHE [None]
  - DYSPNOEA [None]
  - CHEST PAIN [None]
  - NAUSEA [None]
  - VOMITING [None]
  - MUSCLE TWITCHING [None]
  - MOVEMENT DISORDER [None]
  - PAIN [None]
  - MUSCULOSKELETAL PAIN [None]
  - INCOHERENT [None]
  - URINARY INCONTINENCE [None]
  - CHILLS [None]
  - TREMOR [None]
  - MYALGIA [None]
